FAERS Safety Report 5161365-9 (Version None)
Quarter: 2006Q4

REPORT INFORMATION
  Report Type: 
  Country: None (occurrence: None)
  Receive Date: 20061121
  Receipt Date: 20061108
  Transmission Date: 20070319
  Serious: Yes (Other)
  Sender: FDA-Public Use
  Company Number: 2006140574

PATIENT
  Age: 38 Year
  Sex: Female

DRUGS (2)
  1. LYRICA [Suspect]
     Dosage: 450 MG (150 MG, 3 IN 1 D), ORAL
     Route: 048
     Dates: start: 20060101
  2. MOLIPAXIN                        (TRAZODONE  HYDROCHLORIDE) [Concomitant]

REACTIONS (1)
  - ASTHMA [None]
